FAERS Safety Report 7443071-0 (Version None)
Quarter: 2011Q2

REPORT INFORMATION
  Report Type: 
  Country: None (occurrence: None)
  Receive Date: 20110428
  Receipt Date: 20110415
  Transmission Date: 20111010
  Serious: Yes (Other)
  Sender: FDA-Public Use
  Company Number: US-PURDUE-USA-2010-0061634

PATIENT
  Sex: Female

DRUGS (2)
  1. OXYCONTIN TABLETS [Suspect]
     Dosage: 80 MG, BID
     Route: 048
  2. OXYCONTIN TABLETS [Suspect]
     Indication: NERVOUS SYSTEM DISORDER
     Dosage: 20 MG, BID
     Route: 048

REACTIONS (4)
  - CHILLS [None]
  - STAPHYLOCOCCAL INFECTION [None]
  - DRUG WITHDRAWAL SYNDROME [None]
  - CELLULITIS [None]
